FAERS Safety Report 12285750 (Version 2)
Quarter: 2016Q4

REPORT INFORMATION
  Report Type: Spontaneous
  Country: JP (occurrence: JP)
  Receive Date: 20160420
  Receipt Date: 20161229
  Transmission Date: 20170207
  Serious: Yes (Other)
  Sender: FDA-Public Use
  Company Number: JP-GLAXOSMITHKLINE-JP2016JPN051492

PATIENT
  Sex: Female
  Weight: 62 kg

DRUGS (10)
  1. VALTREX [Suspect]
     Active Substance: VALACYCLOVIR HYDROCHLORIDE
     Indication: HERPES SIMPLEX
     Dosage: 1000 MG, 1D
     Route: 048
     Dates: start: 20110721, end: 20110726
  2. LOXONIN [Suspect]
     Active Substance: LOXOPROFEN SODIUM
     Indication: ABDOMINAL PAIN LOWER
  3. ROCEPHIN [Suspect]
     Active Substance: CEFTRIAXONE SODIUM
     Indication: ABDOMINAL PAIN LOWER
  4. SODIUM CHLORIDE SOLUTION [Concomitant]
     Active Substance: SODIUM CHLORIDE
     Dosage: UNK
  5. FLORID [Concomitant]
     Active Substance: MICONAZOLE
     Dosage: UNK
  6. LOXONIN [Suspect]
     Active Substance: LOXOPROFEN SODIUM
     Indication: PYREXIA
     Dosage: 180 MG, 1D
     Route: 048
     Dates: start: 20110721, end: 20110726
  7. ROCEPHIN [Suspect]
     Active Substance: CEFTRIAXONE SODIUM
     Indication: PYREXIA
     Dosage: 1 G, 1D
     Route: 042
     Dates: start: 20110721, end: 20110721
  8. MUCOSTA [Concomitant]
     Active Substance: REBAMIPIDE
     Dosage: UNK
  9. ARASENA-A [Concomitant]
     Active Substance: VIDARABINE
     Dosage: UNK
  10. MYSER CREAM [Concomitant]
     Dosage: UNK

REACTIONS (6)
  - Toxic epidermal necrolysis [Unknown]
  - Abdominal pain lower [Unknown]
  - Stevens-Johnson syndrome [Unknown]
  - Pyrexia [Unknown]
  - Erythema [Unknown]
  - Ocular hyperaemia [Unknown]
